FAERS Safety Report 4762070-0 (Version None)
Quarter: 2005Q3

REPORT INFORMATION
  Report Type: 
  Country: None (occurrence: None)
  Receive Date: 20050831
  Receipt Date: 20050525
  Transmission Date: 20060218
  Serious: No
  Sender: FDA-Public Use
  Company Number: PHEH2005US05942

PATIENT
  Age: 67 Year
  Sex: Female

DRUGS (2)
  1. ENABLEX [Suspect]
     Indication: POLLAKIURIA
     Dosage: 7.5 MG, QD; 15 MG
     Dates: start: 20050503
  2. VALTREX [Concomitant]

REACTIONS (2)
  - ABDOMINAL PAIN [None]
  - NOCTURIA [None]
